FAERS Safety Report 6213393-X (Version None)
Quarter: 2009Q2

REPORT INFORMATION
  Report Type: 
  Country: None (occurrence: None)
  Receive Date: 20090603
  Receipt Date: 20090525
  Transmission Date: 20091009
  Serious: Yes (Other)
  Sender: FDA-Public Use
  Company Number: PHHY2009MX20366

PATIENT
  Age: 88 Year
  Sex: Female

DRUGS (2)
  1. ACLASTA [Suspect]
     Indication: OSTEOPOROSIS
     Dosage: 5 MG/100ML
     Dates: start: 20070501
  2. ACLASTA [Suspect]
     Dosage: 5 MG/100ML
     Dates: start: 20080501

REACTIONS (4)
  - BEDRIDDEN [None]
  - BONE LESION [None]
  - BONE PAIN [None]
  - EMPHYSEMA [None]
